FAERS Safety Report 11044426 (Version 1)
Quarter: 2015Q2

REPORT INFORMATION
  Report Type: Spontaneous
  Country: US (occurrence: US)
  Receive Date: 20150417
  Receipt Date: 20150417
  Transmission Date: 20150821
  Serious: No
  Sender: FDA-Public Use
  Company Number: US-PFIZER INC-2015127748

PATIENT
  Age: 61 Year
  Sex: Female

DRUGS (2)
  1. SUTENT [Suspect]
     Active Substance: SUNITINIB MALATE
     Dosage: 25 MG, DAILY
     Dates: start: 20150223
  2. SUTENT [Suspect]
     Active Substance: SUNITINIB MALATE
     Indication: PANCREATIC NEUROENDOCRINE TUMOUR METASTATIC
     Dosage: 37.5 MG, DAILY

REACTIONS (11)
  - Quality of life decreased [Unknown]
  - Blood triglycerides increased [Unknown]
  - Skin reaction [Unknown]
  - Blister [Unknown]
  - Insomnia [Unknown]
  - Headache [Unknown]
  - Hypertension [Unknown]
  - Dysphagia [Unknown]
  - Blood cholesterol increased [Unknown]
  - Weight decreased [Unknown]
  - Thyroid function test abnormal [Unknown]
